FAERS Safety Report 7770777-6 (Version None)
Quarter: 2011Q3

REPORT INFORMATION
  Report Type: 
  Country: None (occurrence: None)
  Receive Date: 20110922
  Receipt Date: 20110418
  Transmission Date: 20111222
  Serious: No
  Sender: FDA-Public Use
  Company Number: US-ASTRAZENECA-2007UW25657

PATIENT
  Age: 35 Year
  Sex: Male
  Weight: 127.9 kg

DRUGS (5)
  1. GEODON [Concomitant]
     Dates: start: 20000101
  2. RISPERDAL [Concomitant]
     Dates: start: 20070101
  3. PHEN-FEN [Concomitant]
     Dates: start: 19970101, end: 19980101
  4. HALDOL [Concomitant]
     Dates: start: 20000101
  5. SEROQUEL [Suspect]
     Indication: BIPOLAR DISORDER
     Dosage: 200 TO 1000 MG
     Route: 048
     Dates: start: 20000801, end: 20070404

REACTIONS (6)
  - OBESITY [None]
  - TYPE 2 DIABETES MELLITUS [None]
  - WOUND [None]
  - BLOOD CHOLESTEROL INCREASED [None]
  - HYPERLIPIDAEMIA [None]
  - BLOOD TRIGLYCERIDES INCREASED [None]
